FAERS Safety Report 5444487-4 (Version None)
Quarter: 2007Q3

REPORT INFORMATION
  Report Type: 
  Country: None (occurrence: None)
  Receive Date: 20070831
  Receipt Date: 20070822
  Transmission Date: 20080115
  Serious: Yes (Other)
  Sender: FDA-Public Use
  Company Number: 2007327165

PATIENT
  Age: 50 Year
  Sex: Female

DRUGS (3)
  1. BENADRYL [Suspect]
     Indication: DERMATITIS CONTACT
     Dosage: RECOMMENDED DOSE, ORAL
     Route: 048
     Dates: start: 20070706
  2. DIPHENHYDRAMINE HCL [Suspect]
     Indication: DERMATITIS CONTACT
     Dosage: UNSPECIFIED, ORAL
     Route: 048
     Dates: start: 20070712, end: 20070720
  3. ALL OTHER NON-THERAPEUTIC PRODUCTS (ALL OTHER NON-THERAPEUTIC PRODUCTS [Suspect]
     Indication: DERMATITIS CONTACT
     Dosage: UNSPECIFIED, TOPICAL
     Route: 061

REACTIONS (12)
  - ANAEMIA VITAMIN B12 DEFICIENCY [None]
  - ANOREXIA [None]
  - ASTHENIA [None]
  - BLOOD PRESSURE INCREASED [None]
  - DIZZINESS [None]
  - HYPOAESTHESIA [None]
  - HYPOAESTHESIA FACIAL [None]
  - PAROSMIA [None]
  - STOMACH DISCOMFORT [None]
  - TREMOR [None]
  - VOMITING [None]
  - WEIGHT DECREASED [None]
